FAERS Safety Report 17974560 (Version 2)
Quarter: 2020Q3

REPORT INFORMATION
  Report Type: Spontaneous
  Country: US (occurrence: US)
  Receive Date: 20200702
  Receipt Date: 20200707
  Transmission Date: 20201103
  Serious: Yes (Other)
  Sender: FDA-Public Use
  Company Number: US-PFIZER INC-2020254066

PATIENT
  Age: 55 Year
  Sex: Female
  Weight: 88 kg

DRUGS (12)
  1. TRAZODONE [Concomitant]
     Active Substance: TRAZODONE HYDROCHLORIDE
     Indication: SLEEP DISORDER
     Dosage: 100 MG, 1X/DAY (TAKE ONCE DAILY BY MOUTH)
     Route: 048
  2. CITALOPRAM [Concomitant]
     Active Substance: CITALOPRAM HYDROBROMIDE
     Indication: DEPRESSION
     Dosage: 40 MG, 1X/DAY
     Route: 048
  3. FISH OIL [Concomitant]
     Active Substance: FISH OIL
     Indication: NUTRITIONAL SUPPLEMENTATION
     Dosage: 1000 MG, 1X/DAY (TAKE ONCE DAILY BY MOUTH)
     Route: 048
  4. AMLODIPINE [Concomitant]
     Active Substance: AMLODIPINE BESYLATE
     Indication: BLOOD PRESSURE ABNORMAL
     Dosage: 10 MG, 1X/DAY (TAKE ONCE DAILY BY MOUTH)
     Route: 048
  5. SINGULAIR [Concomitant]
     Active Substance: MONTELUKAST SODIUM
     Indication: CHRONIC OBSTRUCTIVE PULMONARY DISEASE
     Dosage: 10 MG, 1X/DAY (10 MG; TAKES ONCE DAILY BY MOUTH)
     Route: 048
  6. VITAMIN D [COLECALCIFEROL] [Concomitant]
     Active Substance: CHOLECALCIFEROL
     Indication: VITAMIN D DEFICIENCY
     Dosage: 2000 MG, 1X/DAY (D3 CHOLE 2000 MG; TAKE ONCE DAILY BY MOUTH)
     Route: 048
  7. NAPOXEN [Concomitant]
     Active Substance: NAPROXEN SODIUM
     Indication: PAIN
     Dosage: 500 MG, 2X/DAY (TAKE ONE TWICE DAILY BY MOUTH)
     Route: 048
  8. GABAPENTIN. [Suspect]
     Active Substance: GABAPENTIN
     Indication: EXOSTOSIS
     Dosage: UNK, (SOMETIMES SHE DOES 800 MG IN THE AFTERNOON)
  9. GABAPENTIN. [Suspect]
     Active Substance: GABAPENTIN
     Indication: SURGERY
  10. GABAPENTIN. [Suspect]
     Active Substance: GABAPENTIN
     Indication: PAIN
     Dosage: 2000 MG, DAILY (800MG IN THE MORNING; 400MG IN MIDAFTERNOON; 800MG AT BEDTIME DAILY)
     Route: 048
     Dates: start: 2017
  11. MELATONIN [Concomitant]
     Active Substance: MELATONIN
     Indication: SLEEP DISORDER
     Dosage: 3 MG, AS NEEDED (TAKE ONCE DAILY AS NEEDED)
  12. ATORVASTATIN [Concomitant]
     Active Substance: ATORVASTATIN
     Indication: BLOOD CHOLESTEROL ABNORMAL
     Dosage: 10 MG, 1X/DAY (TAKE ONCE DAILY BY MOUTH)
     Route: 048

REACTIONS (5)
  - Amnesia [Not Recovered/Not Resolved]
  - Off label use [Unknown]
  - Respiratory arrest [Unknown]
  - Oxygen saturation decreased [Unknown]
  - Product use in unapproved indication [Unknown]

NARRATIVE: CASE EVENT DATE: 2019
